FAERS Safety Report 16029065 (Version 1)
Quarter: 2019Q2

REPORT INFORMATION
  Report Type: Spontaneous
  Country: US (occurrence: US)
  Receive Date: 20190302
  Receipt Date: 20190302
  Transmission Date: 20190711
  Serious: No
  Sender: FDA-Public Use
  Company Number: None

PATIENT
  Age: 43 Year
  Sex: Male
  Weight: 72 kg

DRUGS (1)
  1. TESTOSTERONE CYPIONATE. [Suspect]
     Active Substance: TESTOSTERONE CYPIONATE
     Indication: HYPOGONADISM
     Dosage: ?          QUANTITY:1 INJECTION(S);OTHER FREQUENCY:.4ML ONCE A WEEK;?
     Route: 030
     Dates: start: 20190125, end: 20190214

REACTIONS (6)
  - Fatigue [None]
  - Product quality issue [None]
  - Tearfulness [None]
  - Depression [None]
  - Anxiety [None]
  - Product physical consistency issue [None]

NARRATIVE: CASE EVENT DATE: 20190207
